FAERS Safety Report 17059733 (Version 1)
Quarter: 2019Q4

REPORT INFORMATION
  Report Type: Spontaneous
  Country: US (occurrence: US)
  Receive Date: 20191121
  Receipt Date: 20191121
  Transmission Date: 20200122
  Serious: Yes (Death)
  Sender: FDA-Public Use
  Company Number: None

PATIENT
  Age: 68 Year
  Sex: Male

DRUGS (14)
  1. POTASSIUM CHLORIDE 20 MEQ/15ML [Concomitant]
  2. CAPECITABINE. [Suspect]
     Active Substance: CAPECITABINE
     Indication: RECTAL CANCER
     Route: 048
     Dates: start: 20191003
  3. ASPIRIN 81 MG [Concomitant]
     Active Substance: ASPIRIN
  4. CREON 24000U CAPS [Concomitant]
  5. CALCIUM CARBONATE 600 MG [Concomitant]
  6. KLONOPIN 1 MG [Concomitant]
  7. MELATONIN 3 MG [Concomitant]
  8. METOPROLOL ER SUCCINATE 50 MG [Concomitant]
  9. CARAFATE 1 GM [Concomitant]
  10. FISH OIL 1000 MG [Concomitant]
  11. PRILOSEC 40 MG [Concomitant]
  12. FERROUS SULFATE 325 MG [Concomitant]
  13. URECHOLINE 25 MG [Concomitant]
  14. SIMVASTATIN 20 MG [Concomitant]
     Active Substance: SIMVASTATIN

REACTIONS (1)
  - Death [None]

NARRATIVE: CASE EVENT DATE: 20191119
